FAERS Safety Report 6557179-5 (Version None)
Quarter: 2010Q1

REPORT INFORMATION
  Report Type: 
  Country: None (occurrence: None)
  Receive Date: 20100127
  Receipt Date: 20100127
  Transmission Date: 20100710
  Serious: Yes (Hospitalization)
  Sender: FDA-Public Use
  Company Number: None

PATIENT
  Sex: Male
  Weight: 110.6 kg

DRUGS (8)
  1. FLUOROURACIL [Suspect]
     Dosage: 20600 MG
     Dates: start: 20090610
  2. BEVACIZUMAB (RHUMAB VEGF) [Suspect]
     Dosage: 1730 MG
     Dates: start: 20090610
  3. LEUCOVORIN CALCIUM [Suspect]
     Dosage: 2950 MG
     Dates: start: 20090610
  4. ELOXATIN [Suspect]
     Dosage: 480 MG
     Dates: start: 20090610
  5. ATROPINE [Concomitant]
  6. PAXIL [Concomitant]
  7. PROTONIX [Concomitant]
  8. REGLAN [Concomitant]

REACTIONS (7)
  - ACQUIRED DIAPHRAGMATIC EVENTRATION [None]
  - AGITATION [None]
  - COUGH [None]
  - FEELING ABNORMAL [None]
  - PLEURITIC PAIN [None]
  - RESTLESSNESS [None]
  - SINUS TACHYCARDIA [None]
